FAERS Safety Report 18726814 (Version 1)
Quarter: 2021Q1

REPORT INFORMATION
  Report Type: Spontaneous
  Country: US (occurrence: US)
  Receive Date: 20210111
  Receipt Date: 20210111
  Transmission Date: 20210419
  Serious: No
  Sender: FDA-Public Use
  Company Number: US-PFIZER INC-2021008065

PATIENT
  Age: 17 Year
  Sex: Female

DRUGS (4)
  1. ZOLOFT [Suspect]
     Active Substance: SERTRALINE HYDROCHLORIDE
     Dosage: 25 MG (25 MG FOR ONE WEEK)
  2. ZOLOFT [Suspect]
     Active Substance: SERTRALINE HYDROCHLORIDE
     Dosage: UNK (FOR ONE WEEK WE GAVE HALF A TABLET)
  3. ZOLOFT [Suspect]
     Active Substance: SERTRALINE HYDROCHLORIDE
     Dosage: 75 MG (75 MG FOR 1 WEEK)
  4. ZOLOFT [Suspect]
     Active Substance: SERTRALINE HYDROCHLORIDE
     Dosage: 50 MG (HER DOSE WAS 50 MG FOR 2 MONTHS)

REACTIONS (4)
  - Neck pain [Unknown]
  - Tic [Not Recovered/Not Resolved]
  - Tremor [Unknown]
  - Abnormal behaviour [Unknown]
